FAERS Safety Report 20777356 (Version 1)
Quarter: 2022Q2

REPORT INFORMATION
  Report Type: Spontaneous
  Country: BE (occurrence: BE)
  Receive Date: 20220503
  Receipt Date: 20220503
  Transmission Date: 20220721
  Serious: Yes (Other)
  Sender: FDA-Public Use
  Company Number: BE-LUPIN PHARMACEUTICALS INC.-2022-06392

PATIENT
  Age: 77 Year
  Sex: Male
  Weight: 88 kg

DRUGS (7)
  1. VORICONAZOLE [Suspect]
     Active Substance: VORICONAZOLE
     Indication: Aspergillus infection
     Dosage: 6 MILLIGRAM/KILOGRAM, BID, ON DAY 1
     Route: 042
  2. VORICONAZOLE [Suspect]
     Active Substance: VORICONAZOLE
     Indication: Fracture infection
     Dosage: 4 MILLIGRAM/KILOGRAM, BID
     Route: 065
  3. ISAVUCONAZOLE [Concomitant]
     Active Substance: ISAVUCONAZOLE
     Indication: Aspergillus infection
     Dosage: 200 MG, TID, LOADING DOSE
     Route: 042
  4. ISAVUCONAZOLE [Concomitant]
     Active Substance: ISAVUCONAZOLE
     Indication: Fracture infection
     Dosage: 200 MG, QD, MAINTENANCE DOSE
     Route: 042
  5. ISAVUCONAZOLE [Concomitant]
     Active Substance: ISAVUCONAZOLE
     Dosage: UNK, CAPSULE, INITIAL DOSE NOT STATED
     Route: 048
  6. ISAVUCONAZOLE [Concomitant]
     Active Substance: ISAVUCONAZOLE
     Dosage: 100 MILLIGRAM, QD, CAPSULE
     Route: 048
  7. ISAVUCONAZOLE [Concomitant]
     Active Substance: ISAVUCONAZOLE
     Dosage: 200 MILLIGRAM, QD, CAPSULE
     Route: 048

REACTIONS (1)
  - Liver function test increased [Recovered/Resolved]
